FAERS Safety Report 12224098 (Version 1)
Quarter: 2016Q1

REPORT INFORMATION
  Report Type: Report from Study
  Country: NL (occurrence: NL)
  Receive Date: 20160330
  Receipt Date: 20160330
  Transmission Date: 20160526
  Serious: Yes (Other)
  Sender: FDA-Public Use
  Company Number: NL-AMGEN-NLDSL2016037247

PATIENT
  Age: 46 Year
  Sex: Female

DRUGS (13)
  1. XGEVA [Suspect]
     Active Substance: DENOSUMAB
     Indication: PRODUCT USED FOR UNKNOWN INDICATION
     Dosage: 120 MG, Q4WK
     Route: 058
     Dates: start: 20130201
  2. VESICARE [Concomitant]
     Active Substance: SOLIFENACIN SUCCINATE
     Dosage: 10 MG, UNK
     Dates: start: 20151026
  3. ERIBULIN [Concomitant]
     Active Substance: ERIBULIN
     Dosage: UNK
     Dates: start: 201502
  4. COLECALCIFEROL [Concomitant]
     Active Substance: CHOLECALCIFEROL
     Dosage: 880 UNK, UNK
     Dates: start: 20160222
  5. DALTEPARINE SODIQUE [Concomitant]
     Dosage: 2500= 0.2 ML
  6. PACLITAXEL. [Concomitant]
     Active Substance: PACLITAXEL
  7. CALCIUMCARBONAT [Concomitant]
     Dosage: 2.5 G, UNK
     Dates: start: 20160222
  8. ANASTROZOLE. [Concomitant]
     Active Substance: ANASTROZOLE
     Dosage: UNK
     Dates: start: 20131120
  9. CAPECITABINE. [Concomitant]
     Active Substance: CAPECITABINE
     Dosage: UNK
     Dates: start: 20140520
  10. LUCRIN [Concomitant]
     Active Substance: LEUPROLIDE ACETATE
     Dosage: UNK
     Dates: start: 20131120
  11. VINCRISTINE [Concomitant]
     Active Substance: VINCRISTINE
     Dosage: UNK
     Dates: start: 201502
  12. FULVESTRANT [Concomitant]
     Active Substance: FULVESTRANT
     Dosage: 50 UNK, UNK
     Dates: start: 20160222
  13. MUPIROCINE [Concomitant]
     Dosage: 20 MG/G, UNK
     Dates: start: 20151022

REACTIONS (13)
  - Pleural effusion [Unknown]
  - Malignant neoplasm progression [Unknown]
  - C-reactive protein increased [Unknown]
  - Metastases to lung [Unknown]
  - Neuropathy peripheral [Unknown]
  - Metastases to bone [Unknown]
  - Neutropenia [Unknown]
  - Blood calcium increased [Unknown]
  - Intentional product misuse [Unknown]
  - Peritonitis [Unknown]
  - Injury [Unknown]
  - Off label use [Unknown]
  - Articular calcification [Unknown]

NARRATIVE: CASE EVENT DATE: 20131120
